FAERS Safety Report 10670564 (Version 2)
Quarter: 2015Q1

REPORT INFORMATION
  Report Type: Spontaneous
  Country: BR (occurrence: BR)
  Receive Date: 20141223
  Receipt Date: 20150101
  Transmission Date: 20150720
  Serious: Yes (Other)
  Sender: FDA-Public Use
  Company Number: PHHY2014BR164206

PATIENT
  Age: 69 Year
  Sex: Female
  Weight: 59 kg

DRUGS (6)
  1. LESCOL XL [Suspect]
     Active Substance: FLUVASTATIN SODIUM
     Indication: BLOOD CHOLESTEROL INCREASED
     Dosage: 1 DF, QHS
     Route: 048
  2. DILACORAN [Suspect]
     Active Substance: VERAPAMIL HYDROCHLORIDE
     Indication: TACHYCARDIA
     Dosage: 2 DF, QD
     Route: 048
  3. VERAPAMIL [Suspect]
     Active Substance: VERAPAMIL HYDROCHLORIDE
     Indication: ARRHYTHMIA
     Dosage: UNK UNK, BID (TWICE DAILY)
     Route: 048
  4. LIMBITROL [Concomitant]
     Active Substance: AMITRIPTYLINE\CHLORDIAZEPOXIDE
     Indication: ANXIETY
     Dosage: 1 DF, QD
     Route: 048
  5. LESCOL XL [Suspect]
     Active Substance: FLUVASTATIN SODIUM
     Dosage: 1 DF, QHS
     Route: 048
  6. OLCADIL [Suspect]
     Active Substance: CLOXAZOLAM
     Indication: ANXIETY
     Dosage: 1 DF, QD
     Route: 048

REACTIONS (16)
  - Breast injury [Recovering/Resolving]
  - Head injury [Recovering/Resolving]
  - Dengue fever [Recovered/Resolved]
  - Genital injury [Recovering/Resolving]
  - Tooth fracture [Recovering/Resolving]
  - Oedema peripheral [Recovered/Resolved]
  - Memory impairment [Not Recovered/Not Resolved]
  - Hepatitis [Recovering/Resolving]
  - Vitreous detachment [Not Recovered/Not Resolved]
  - Fall [Recovering/Resolving]
  - Limb injury [Recovering/Resolving]
  - Cataract [Recovering/Resolving]
  - Osteoarthritis [Unknown]
  - Upper limb fracture [Recovering/Resolving]
  - Mouth injury [Recovering/Resolving]
  - Tendonitis [Recovering/Resolving]

NARRATIVE: CASE EVENT DATE: 2005
